FAERS Safety Report 5006645-2 (Version None)
Quarter: 2006Q2

REPORT INFORMATION
  Report Type: 
  Country: None (occurrence: None)
  Receive Date: 20060516
  Receipt Date: 20060502
  Transmission Date: 20061013
  Serious: Yes (Death, Hospitalization)
  Sender: FDA-Public Use
  Company Number: 2006-00679

PATIENT
  Age: 63 Year
  Sex: 0

DRUGS (4)
  1. VELCADE [Suspect]
     Indication: MANTLE CELL LYMPHOMA
     Dates: start: 20050613, end: 20060403
  2. DOXIL [Suspect]
     Indication: MANTLE CELL LYMPHOMA
     Dates: start: 20050613, end: 20060403
  3. DEXAMETHASONE [Suspect]
     Indication: MANTLE CELL LYMPHOMA
     Dates: start: 20050613, end: 20060403
  4. RITUXIMAB(RITUXIMAB) SOLUTION [Suspect]
     Indication: MANTLE CELL LYMPHOMA
     Dates: start: 20050613, end: 20060403

REACTIONS (14)
  - ABDOMINAL PAIN [None]
  - ANOREXIA [None]
  - ASTHENIA [None]
  - CITROBACTER INFECTION [None]
  - DIARRHOEA [None]
  - DISEASE PROGRESSION [None]
  - INFECTION [None]
  - INSOMNIA [None]
  - LEUKOPENIA [None]
  - NEUTROPENIC INFECTION [None]
  - PYREXIA [None]
  - RASH [None]
  - RESPIRATORY FAILURE [None]
  - THROMBOCYTOPENIA [None]
